FAERS Safety Report 14495094 (Version 3)
Quarter: 2018Q2

REPORT INFORMATION
  Report Type: Spontaneous
  Country: US (occurrence: US)
  Receive Date: 20180206
  Receipt Date: 20180503
  Transmission Date: 20180711
  Serious: No
  Sender: FDA-Public Use
  Company Number: US-ABBVIE-18P-163-2236435-00

PATIENT
  Sex: Female

DRUGS (1)
  1. MAVYRET [Suspect]
     Active Substance: GLECAPREVIR\PIBRENTASVIR
     Indication: HEPATITIS C
     Route: 065
     Dates: end: 20180124

REACTIONS (4)
  - Musculoskeletal disorder [Unknown]
  - Fatigue [Recovering/Resolving]
  - Pain [Unknown]
  - General physical condition abnormal [Unknown]
